FAERS Safety Report 4757389-3 (Version None)
Quarter: 2005Q3

REPORT INFORMATION
  Report Type: 
  Country: None (occurrence: None)
  Receive Date: 20050829
  Receipt Date: 20050816
  Transmission Date: 20060218
  Serious: Yes (Hospitalization, Other)
  Sender: FDA-Public Use
  Company Number: 2005116790

PATIENT
  Sex: Female

DRUGS (5)
  1. DETROL LA [Suspect]
     Indication: HYPERTONIC BLADDER
     Dosage: SEE IMAGE
     Route: 048
  2. VITAMIN C (VITAMIN C) [Concomitant]
  3. VITAMIN E [Concomitant]
  4. GINKGO BILOBA (GINKGO BILOBA) [Concomitant]
  5. CELEBREX [Concomitant]

REACTIONS (6)
  - ARTHRALGIA [None]
  - DRUG EFFECT DECREASED [None]
  - HIP ARTHROPLASTY [None]
  - MYOCARDIAL INFARCTION [None]
  - TREATMENT NONCOMPLIANCE [None]
  - URINARY INCONTINENCE [None]
